FAERS Safety Report 17348870 (Version 1)
Quarter: 2020Q1

REPORT INFORMATION
  Report Type: Report from Study
  Country: IT (occurrence: IT)
  Receive Date: 20200130
  Receipt Date: 20200130
  Transmission Date: 20200409
  Serious: Yes (Disabling)
  Sender: FDA-Public Use
  Company Number: IT-ROCHE-2532838

PATIENT
  Age: 42 Year
  Sex: Male

DRUGS (7)
  1. RITUXIMAB. [Suspect]
     Active Substance: RITUXIMAB
     Indication: EXTRANODAL MARGINAL ZONE B-CELL LYMPHOMA (MALT TYPE)
     Dosage: ON 20/AUG/2018, RECEIVED THE MOST RECENT DOSE OF RITUXIMAB PRIOR TO SAE
     Route: 042
     Dates: start: 20160129
  2. DIBASE [Concomitant]
     Active Substance: CHOLECALCIFEROL
     Route: 048
  3. TRIAZOLAM. [Concomitant]
     Active Substance: TRIAZOLAM
     Route: 048
  4. CHLORAMBUCIL [Suspect]
     Active Substance: CHLORAMBUCIL
     Indication: EXTRANODAL MARGINAL ZONE B-CELL LYMPHOMA (MALT TYPE)
     Dosage: 25/JUL/2016, MOST RECENT DOSE OF CHLORAMBUCIL PRIOR TO SAE
     Route: 048
     Dates: start: 20160129
  5. RITUXIMAB. [Suspect]
     Active Substance: RITUXIMAB
     Indication: EXTRANODAL MARGINAL ZONE B-CELL LYMPHOMA (MALT TYPE)
     Dosage: ON 20/AUG/2018, RECEIVED THE MOST RECENT DOSE OF RITUXIMAB SC PRIOR TO SAE.
     Route: 058
     Dates: start: 20160129
  6. QUETIAPINA [QUETIAPINE] [Concomitant]
     Active Substance: QUETIAPINE
     Dosage: 50 MG/100 MG
     Route: 048
  7. CITALOPRAM [Concomitant]
     Active Substance: CITALOPRAM HYDROBROMIDE
     Route: 048

REACTIONS (1)
  - Leukoencephalopathy [Not Recovered/Not Resolved]

NARRATIVE: CASE EVENT DATE: 20190910
